FAERS Safety Report 20049063 (Version 1)
Quarter: 2021Q4

REPORT INFORMATION
  Report Type: Spontaneous
  Country: US (occurrence: US)
  Receive Date: 20211109
  Receipt Date: 20211109
  Transmission Date: 20220303
  Serious: No
  Sender: FDA-Public Use
  Company Number: US-UNITED THERAPEUTICS-UNT-2021-022323

PATIENT
  Age: 50 Year
  Sex: Female

DRUGS (2)
  1. REMODULIN [Suspect]
     Active Substance: TREPROSTINIL
     Indication: Pulmonary arterial hypertension
     Dosage: UNK, CONTINUING
     Route: 041
     Dates: start: 20180516
  2. REMODULIN [Suspect]
     Active Substance: TREPROSTINIL
     Dosage: 0.0645 ?G/KG, CONTINUING (40 ML/24HR)
     Route: 041

REACTIONS (2)
  - Medical device site haemorrhage [Recovered/Resolved]
  - Device leakage [Recovered/Resolved]

NARRATIVE: CASE EVENT DATE: 20211025
